FAERS Safety Report 19650575 (Version 1)
Quarter: 2021Q3

REPORT INFORMATION
  Report Type: Spontaneous
  Country: US (occurrence: US)
  Receive Date: 20210731
  Receipt Date: 20210731
  Transmission Date: 20211014
  Serious: Yes (Hospitalization)
  Sender: FDA-Public Use
  Company Number: None

PATIENT
  Age: 75 Year
  Sex: Female
  Weight: 49.9 kg

DRUGS (2)
  1. TAXOL [Suspect]
     Active Substance: PACLITAXEL
     Dates: end: 20201216
  2. CARBOPLATIN. [Suspect]
     Active Substance: CARBOPLATIN
     Dates: end: 20201216

REACTIONS (5)
  - Odynophagia [None]
  - Vitamin C decreased [None]
  - Weight decreased [None]
  - Radiation oesophagitis [None]
  - Food intolerance [None]

NARRATIVE: CASE EVENT DATE: 20210122
